FAERS Safety Report 11348395 (Version 1)
Quarter: 2015Q3

REPORT INFORMATION
  Report Type: Report from Study
  Country: US (occurrence: US)
  Receive Date: 20150806
  Receipt Date: 20150806
  Transmission Date: 20151125
  Serious: No
  Sender: FDA-Public Use
  Company Number: PHEH2015US004004

PATIENT
  Sex: Female

DRUGS (4)
  1. EXTAVIA [Suspect]
     Active Substance: INTERFERON BETA-1B
     Indication: MULTIPLE SCLEROSIS
     Dosage: 0.062 MG, (0.25 ML), QOD (FOR WEEKS 1 TO 2)
     Route: 058
     Dates: start: 20150221
  2. EXTAVIA [Suspect]
     Active Substance: INTERFERON BETA-1B
     Dosage: 0.25 MG, (1 ML), QOD (FOR WEEKS 7 AND ABOVE)
     Route: 058
  3. EXTAVIA [Suspect]
     Active Substance: INTERFERON BETA-1B
     Dosage: 0.187 MG, (0.75 ML), QOD (FOR WEEKS 5 TO 6)
     Route: 058
  4. EXTAVIA [Suspect]
     Active Substance: INTERFERON BETA-1B
     Dosage: 0.125 MG, (0.5 ML), QOD (FOR WEEKS 3 TO 4)
     Route: 058

REACTIONS (7)
  - Injection site pain [Unknown]
  - Tremor [Not Recovered/Not Resolved]
  - Dyspnoea [Unknown]
  - Injection site haemorrhage [Unknown]
  - Headache [Unknown]
  - Injection site discolouration [Unknown]
  - Injection site reaction [Not Recovered/Not Resolved]
